FAERS Safety Report 9423003 (Version 3)
Quarter: 2014Q4

REPORT INFORMATION
  Report Type: Spontaneous
  Country: DK (occurrence: DK)
  Receive Date: 20130726
  Receipt Date: 20141007
  Transmission Date: 20150529
  Serious: Yes (Hospitalization, Other)
  Sender: FDA-Public Use
  Company Number: DK-NOVOPROD-383094

PATIENT
  Age: 72 Year
  Sex: Male
  Weight: 99 kg

DRUGS (8)
  1. METFORMIN ACTAVIS [Concomitant]
     Active Substance: METFORMIN HYDROCHLORIDE
     Indication: TYPE 2 DIABETES MELLITUS
  2. VICTOZA [Suspect]
     Active Substance: LIRAGLUTIDE
     Indication: TYPE 2 DIABETES MELLITUS
     Dosage: STYRKE: 6 MG/ML.
     Route: 058
     Dates: start: 20121101, end: 20130724
  3. PANCREON [Concomitant]
     Active Substance: PANCRELIPASE
  4. NOVORAPID [Concomitant]
     Active Substance: INSULIN ASPART
  5. CENTYL MED KALIUMKLORID [Concomitant]
     Active Substance: BENDROFLUMETHIAZIDE\POTASSIUM CHLORIDE
     Indication: HYPERTENSION
  6. SIMVASTATIN. [Concomitant]
     Active Substance: SIMVASTATIN
     Indication: HYPERCHOLESTEROLAEMIA
  7. ISOPHANE INSULIN [Concomitant]
     Active Substance: INSULIN NOS
  8. ENACODAN [Concomitant]

REACTIONS (11)
  - Liver disorder [Not Recovered/Not Resolved]
  - Amylase increased [Not Recovered/Not Resolved]
  - Decreased appetite [Recovered/Resolved]
  - Cholestasis [Not Recovered/Not Resolved]
  - Weight decreased [Unknown]
  - Alanine aminotransferase increased [Not Recovered/Not Resolved]
  - Vomiting [Recovered/Resolved]
  - Blood alkaline phosphatase increased [Not Recovered/Not Resolved]
  - Serum ferritin increased [Not Recovered/Not Resolved]
  - Adenocarcinoma pancreas [Recovered/Resolved with Sequelae]
  - Fatigue [Recovered/Resolved]

NARRATIVE: CASE EVENT DATE: 2013
